FAERS Safety Report 15129130 (Version 1)
Quarter: 2018Q3

REPORT INFORMATION
  Report Type: Spontaneous
  Country: US (occurrence: US)
  Receive Date: 20180614
  Receipt Date: 20180614
  Transmission Date: 20181010
  Serious: Yes (Other)
  Sender: FDA-Public Use
  Company Number: None

PATIENT
  Age: 60 Year
  Sex: Male
  Weight: 116.1 kg

DRUGS (36)
  1. CONTRAVE [Suspect]
     Active Substance: BUPROPION HYDROCHLORIDE\NALTREXONE HYDROCHLORIDE
     Indication: WEIGHT CONTROL
     Dosage: ?          QUANTITY:2 DF DOSAGE FORM;?
     Route: 048
     Dates: start: 20170110, end: 20171010
  2. CLOBETASOL PROPIONATE FOAM [Concomitant]
     Active Substance: CLOBETASOL PROPIONATE
  3. FENOFIBRATE (TRICOR) [Concomitant]
  4. AMBIEN [Concomitant]
     Active Substance: ZOLPIDEM TARTRATE
  5. FLUTICASONE PROPRIONATE (FLONASE) [Concomitant]
  6. ALPRAZOLAM. [Concomitant]
     Active Substance: ALPRAZOLAM
  7. LIPITOR [Concomitant]
     Active Substance: ATORVASTATIN CALCIUM
  8. FUROSEMIDE (GENERIC LASIX) [Concomitant]
  9. PANTOPRAZOLE [Concomitant]
     Active Substance: PANTOPRAZOLE
  10. NIASPAN [Concomitant]
     Active Substance: NIACIN
  11. POTASSIUM CHLORIDE. [Concomitant]
     Active Substance: POTASSIUM CHLORIDE
  12. PREVIDENT [Concomitant]
     Active Substance: SODIUM FLUORIDE
  13. PROCTOSOL HC [Concomitant]
  14. FEXOFENADINE HCL [Concomitant]
     Active Substance: FEXOFENADINE HYDROCHLORIDE
  15. MELOXICAM. [Concomitant]
     Active Substance: MELOXICAM
  16. VITAMIN B?COMPLEX [Concomitant]
     Active Substance: DEXPANTHENOL\NIACINAMIDE\PYRIDOXINE HYDROCHLORIDE\RIBOFLAVIN 5^-PHOSPHATE SODIUM\THIAMINE HYDROCHLORIDE
  17. IRON SUPPLEMENT [Concomitant]
     Active Substance: IRON
  18. CHLORHEXIDINE GLUCONATE. [Concomitant]
     Active Substance: CHLORHEXIDINE GLUCONATE
  19. LEXAPRO [Concomitant]
     Active Substance: ESCITALOPRAM OXALATE
  20. FARXDIGA (DAPAGLIFLOZIN) [Concomitant]
  21. METFORMIN HYDROCHLORIDE. [Concomitant]
     Active Substance: METFORMIN HYDROCHLORIDE
  22. OMEGA?3?ACID (LOVAZA) [Concomitant]
  23. ALPHA LIPOIC ACID [Concomitant]
     Active Substance: .ALPHA.-LIPOIC ACID
  24. ASPIRIN. [Concomitant]
     Active Substance: ASPIRIN
  25. GENERAL MULTIVITAMIN [Concomitant]
  26. ZINC. [Concomitant]
     Active Substance: ZINC
  27. NOVOLOG [Concomitant]
     Active Substance: INSULIN ASPART
  28. TRESIBA [Concomitant]
     Active Substance: INSULIN DEGLUDEC
  29. CALCIUM [Concomitant]
     Active Substance: CALCIUM
  30. FIBER [Concomitant]
     Active Substance: PSYLLIUM HUSK
  31. MAGNESIUM [Concomitant]
     Active Substance: MAGNESIUM
  32. VITAMIN C [Concomitant]
     Active Substance: ASCORBIC ACID
  33. VITAMIN E [Concomitant]
     Active Substance: .ALPHA.-TOCOPHEROL
  34. LISINOPRIL/HCTZ [Concomitant]
     Active Substance: HYDROCHLOROTHIAZIDE\LISINOPRIL
  35. PROVIGIL [Concomitant]
     Active Substance: MODAFINIL
  36. VITAMIN D [Concomitant]
     Active Substance: CHOLECALCIFEROL

REACTIONS (4)
  - Pain [None]
  - Drug effect decreased [None]
  - Cellulitis [None]
  - Drug ineffective [None]

NARRATIVE: CASE EVENT DATE: 20171010
